FAERS Safety Report 6634405-5 (Version None)
Quarter: 2010Q1

REPORT INFORMATION
  Report Type: 
  Country: None (occurrence: None)
  Receive Date: 20100315
  Receipt Date: 20100305
  Transmission Date: 20100710
  Serious: Yes (Death, Hospitalization, Other)
  Sender: FDA-Public Use
  Company Number: GB-ROCHE-685229

PATIENT
  Sex: Male
  Weight: 80 kg

DRUGS (7)
  1. PEGASYS [Suspect]
     Indication: HEPATITIS C
     Dosage: DOSAGE REPORTED AS 180 (NO UNITS PROVIDED)
     Route: 058
     Dates: start: 20091015, end: 20100122
  2. COPEGUS [Suspect]
     Indication: HEPATITIS C
     Route: 048
     Dates: start: 20091015, end: 20100124
  3. AMITRIPTYLINE HCL [Concomitant]
     Dosage: EVERY NIGHT (NOCTE)
     Route: 048
     Dates: end: 20100122
  4. FRUSEMIDE [Concomitant]
     Route: 048
     Dates: end: 20100122
  5. CETIRIZINE [Concomitant]
     Dosage: ONE AT NIGHT (NOCTE)
     Route: 048
     Dates: end: 20100122
  6. OMEPRAZOLE [Concomitant]
     Route: 048
     Dates: end: 20100122
  7. TRAMADOL HCL [Concomitant]
     Indication: PAIN
     Route: 048
     Dates: end: 20100122

REACTIONS (6)
  - ARTHRITIS BACTERIAL [None]
  - MYOCARDIAL INFARCTION [None]
  - PLATELET COUNT DECREASED [None]
  - RENAL FAILURE [None]
  - SEPSIS [None]
  - SEPTIC SHOCK [None]
